FAERS Safety Report 8757050 (Version 2)
Quarter: 2012Q4

REPORT INFORMATION
  Report Type: 
  Country: FR (occurrence: FR)
  Receive Date: 20120828
  Receipt Date: 20120911
  Transmission Date: 20130627
  Serious: Yes (Hospitalization)
  Sender: FDA-Public Use
  Company Number: FR-PFIZER INC-2012204171

PATIENT
  Age: 70 Year
  Sex: Female
  Weight: 56 kg

DRUGS (11)
  1. ARACYTINE [Suspect]
     Indication: ACUTE LYMPHOCYTIC LEUKAEMIA
     Dosage: 785 mg, 2x/day
     Route: 042
     Dates: start: 20120530, end: 20120617
  2. GLIVEC [Suspect]
     Indication: ACUTE LYMPHOCYTIC LEUKAEMIA
     Dosage: 600 mg a day
     Route: 048
     Dates: start: 201203
  3. CARDENSIEL [Concomitant]
  4. AMLOR [Concomitant]
  5. BACTRIM [Concomitant]
  6. ZELITREX [Concomitant]
  7. LEDERFOLIN [Concomitant]
  8. INNOHEP [Concomitant]
  9. PHOSPHORE [Concomitant]
  10. ZOPHREN [Concomitant]
     Indication: NAUSEA
  11. PRIMPERAN [Concomitant]
     Indication: NAUSEA

REACTIONS (1)
  - Febrile bone marrow aplasia [Recovered/Resolved]
